FAERS Safety Report 6811559-9 (Version None)
Quarter: 2010Q3

REPORT INFORMATION
  Report Type: 
  Country: None (occurrence: None)
  Receive Date: 20100701
  Receipt Date: 20100623
  Transmission Date: 20110219
  Serious: Yes (Hospitalization)
  Sender: FDA-Public Use
  Company Number: US-BIOGENIDEC-2010BI019643

PATIENT
  Age: 60 Year
  Sex: Male

DRUGS (1)
  1. TYSABRI [Suspect]
     Indication: MULTIPLE SCLEROSIS
     Route: 042
     Dates: start: 20071026

REACTIONS (5)
  - BRONCHITIS [None]
  - DECUBITUS ULCER [None]
  - FAECAL INCONTINENCE [None]
  - PNEUMONIA [None]
  - ULCER [None]
